FAERS Safety Report 9317068 (Version 1)
Quarter: 2013Q2

REPORT INFORMATION
  Report Type: Spontaneous
  Country: ES (occurrence: None)
  Receive Date: 20130523
  Receipt Date: 20130523
  Transmission Date: 20140414
  Serious: Yes (Death, Hospitalization, Other)
  Sender: FDA-Public Use
  Company Number: 2013P1006249

PATIENT
  Age: 79 Year
  Sex: Female

DRUGS (4)
  1. DIGOXIN [Suspect]
     Indication: ATRIAL FIBRILLATION
     Route: 048
     Dates: end: 20130221
  2. NICOUMALONE TABLET (ACENOCUMAROL (SINTROM) TABLET) [Suspect]
     Indication: ATRIAL FIBRILLATION
     Route: 048
     Dates: end: 20130128
  3. AMOX. TRIHYD+POT. CLAVULAN. TABLET (AUGMENTIN) [Suspect]
     Indication: BRONCHITIS
     Route: 048
     Dates: start: 20130118, end: 20130127
  4. ENOXAPARIN [Suspect]
     Indication: ATRIAL FIBRILLATION
     Route: 058
     Dates: start: 20130118, end: 20130128

REACTIONS (9)
  - Abdominal wall haematoma [None]
  - Renal failure [None]
  - Cardiac failure congestive [None]
  - Anaemia [None]
  - Oliguria [None]
  - Pseudomonas test positive [None]
  - Drug interaction [None]
  - Multi-organ failure [None]
  - Urinary bladder rupture [None]
